FAERS Safety Report 23647067 (Version 1)
Quarter: 2024Q1

REPORT INFORMATION
  Report Type: Spontaneous
  Country: CN (occurrence: CN)
  Receive Date: 20240319
  Receipt Date: 20240319
  Transmission Date: 20240409
  Serious: Yes (Life-Threatening)
  Sender: FDA-Public Use
  Company Number: CN-Shanghai Hengrui Pharmaceutical Co., Ltd.-2154518

PATIENT
  Age: 47 Year
  Sex: Male
  Weight: 105 kg

DRUGS (9)
  1. SEVOFLURANE [Suspect]
     Active Substance: SEVOFLURANE
     Route: 055
     Dates: start: 20240301, end: 20240301
  2. PROPOFOL [Suspect]
     Active Substance: PROPOFOL
     Route: 042
     Dates: start: 20240301, end: 20240301
  3. FEBUXOSTAT [Concomitant]
     Active Substance: FEBUXOSTAT
     Route: 048
     Dates: start: 20240101, end: 20240307
  4. AMLODIPINE\VALSARTAN [Concomitant]
     Active Substance: AMLODIPINE\VALSARTAN
     Route: 048
     Dates: start: 20240101, end: 20240307
  5. TAMSULOSIN HYDROCHLORIDE [Concomitant]
     Active Substance: TAMSULOSIN HYDROCHLORIDE
     Route: 048
     Dates: start: 20240101, end: 20240305
  6. CEFUROXIME SODIUM [Concomitant]
     Active Substance: CEFUROXIME SODIUM
     Route: 041
     Dates: start: 20240301, end: 20240301
  7. ELECTROLYTE/00909901/ [Concomitant]
     Route: 041
     Dates: start: 20240301, end: 20240301
  8. HYDROXYETHYL STARCH130/0.4 AND SODIUM CHLORID [Concomitant]
     Route: 041
     Dates: start: 20240301, end: 20240301
  9. CISATRACURIUM BESYLATE [Suspect]
     Active Substance: CISATRACURIUM BESYLATE
     Route: 042
     Dates: start: 20240301, end: 20240301

REACTIONS (2)
  - Muscle injury [Recovering/Resolving]
  - Dyspnoea [Recovering/Resolving]

NARRATIVE: CASE EVENT DATE: 20240301
